FAERS Safety Report 7204346-3 (Version None)
Quarter: 2010Q4

REPORT INFORMATION
  Report Type: 
  Country: None (occurrence: None)
  Receive Date: 20101230
  Receipt Date: 20101222
  Transmission Date: 20110411
  Serious: Yes (Death)
  Sender: FDA-Public Use
  Company Number: JP-ROCHE-750531

PATIENT
  Sex: Male

DRUGS (9)
  1. MYCOPHENOLATE MOFETIL [Suspect]
     Route: 048
     Dates: start: 20050831, end: 20051015
  2. MYCOPHENOLATE MOFETIL [Suspect]
     Route: 048
     Dates: start: 20051016, end: 20051027
  3. MYCOPHENOLATE MOFETIL [Suspect]
     Route: 048
     Dates: start: 20051028, end: 20060203
  4. SANDIMMUNE [Suspect]
     Indication: PROPHYLAXIS AGAINST TRANSPLANT REJECTION
     Route: 042
     Dates: start: 20050821, end: 20050929
  5. NEORAL [Suspect]
     Route: 048
     Dates: start: 20050929, end: 20051010
  6. PROGRAF [Concomitant]
     Route: 048
     Dates: start: 20051010, end: 20060130
  7. IMURAN [Concomitant]
     Route: 042
     Dates: start: 20050801, end: 20050830
  8. SOLU-MEDROL [Concomitant]
     Route: 042
     Dates: start: 20050821, end: 20050929
  9. PREDONINE [Concomitant]
     Route: 048
     Dates: start: 20050930, end: 20060203

REACTIONS (1)
  - HAEMOLYTIC URAEMIC SYNDROME [None]
